FAERS Safety Report 5419281-0 (Version None)
Quarter: 2007Q3

REPORT INFORMATION
  Report Type: 
  Country: None (occurrence: None)
  Receive Date: 20070820
  Receipt Date: 20070807
  Transmission Date: 20080115
  Serious: Yes (Hospitalization)
  Sender: FDA-Public Use
  Company Number: PHHO2006AU17137

PATIENT
  Age: 33 Year
  Sex: Male
  Weight: 125 kg

DRUGS (4)
  1. CERTICAN [Suspect]
     Indication: RENAL TRANSPLANT
     Dosage: 1.5 MG, BID
     Route: 048
     Dates: start: 20060816
  2. PREDNISOLONE [Suspect]
     Indication: RENAL TRANSPLANT
     Dosage: 20 MG, BID
     Route: 048
     Dates: start: 20060819
  3. NEORAL [Suspect]
     Indication: RENAL TRANSPLANT
     Dosage: 200 MG, BID
     Route: 048
     Dates: start: 20060817
  4. EVEROLIMUS [Concomitant]

REACTIONS (7)
  - ARTHRALGIA [None]
  - ARTHRITIS BACTERIAL [None]
  - CHOLELITHIASIS [None]
  - PYREXIA [None]
  - SALMONELLOSIS [None]
  - SYNOVIAL DISORDER [None]
  - THERAPEUTIC ASPIRATION [None]
